FAERS Safety Report 8071944-7 (Version None)
Quarter: 2012Q1

REPORT INFORMATION
  Report Type: 
  Country: None (occurrence: None)
  Receive Date: 20120119
  Receipt Date: 20120104
  Transmission Date: 20120608
  Serious: Yes (Hospitalization)
  Sender: FDA-Public Use
  Company Number: B0773737A

PATIENT
  Sex: Male

DRUGS (1)
  1. CEFUROXIME SODIUM [Suspect]
     Indication: PRODUCT USED FOR UNKNOWN INDICATION
     Dosage: PER DAY/ INTRAVENOUS
     Route: 042
     Dates: start: 20111107, end: 20111107

REACTIONS (4)
  - TYPE IV HYPERSENSITIVITY REACTION [None]
  - ACUTE CORONARY SYNDROME [None]
  - ANAPHYLACTIC SHOCK [None]
  - SKIN TEST POSITIVE [None]
